FAERS Safety Report 17284468 (Version 2)
Quarter: 2020Q4

REPORT INFORMATION
  Report Type: Spontaneous
  Country: HU (occurrence: HU)
  Receive Date: 20200117
  Receipt Date: 20201125
  Transmission Date: 20210113
  Serious: Yes (Death, Life-Threatening, Hospitalization, Other)
  Sender: FDA-Public Use
  Company Number: HU-GLAXOSMITHKLINE-HU2020EME007992

PATIENT
  Age: 37 Year
  Sex: Female

DRUGS (4)
  1. LAMOTRIGINE. [Interacting]
     Active Substance: LAMOTRIGINE
     Dosage: 25 MG, Z
  2. VALPROATE [Interacting]
     Active Substance: VALPROIC ACID
     Indication: EPILEPSY
     Dosage: 450 MG VALPROIC ACID IN THE MORNING AND 600 MG
  3. LEVETIRACETAM. [Concomitant]
     Active Substance: LEVETIRACETAM
     Indication: EPILEPSY
     Dosage: UNK
  4. LAMOTRIGINE. [Suspect]
     Active Substance: LAMOTRIGINE
     Indication: EPILEPSY
     Dosage: 12.5 MG
     Dates: start: 201802

REACTIONS (31)
  - Eye pruritus [Unknown]
  - Hypoalbuminaemia [Unknown]
  - Eye disorder [Unknown]
  - Atrial fibrillation [Unknown]
  - Hypernatraemia [Unknown]
  - Drug interaction [Unknown]
  - Blister [Unknown]
  - Oral mucosa erosion [Unknown]
  - Palmar-plantar erythrodysaesthesia syndrome [Unknown]
  - Inflammation [Unknown]
  - Leukopenia [Unknown]
  - Pancytopenia [Unknown]
  - Renal impairment [Unknown]
  - Sepsis [Fatal]
  - Skin necrosis [Unknown]
  - Hepatic enzyme increased [Unknown]
  - Toxic epidermal necrolysis [Fatal]
  - Nikolsky^s sign [Unknown]
  - Multiple organ dysfunction syndrome [Fatal]
  - Pyrexia [Unknown]
  - Oral mucosal blistering [Unknown]
  - Hypoproteinaemia [Unknown]
  - Superinfection [Unknown]
  - Disease progression [Unknown]
  - Respiratory failure [Unknown]
  - Pancreatic enzymes increased [Unknown]
  - Influenza like illness [Unknown]
  - Oropharyngeal pain [Unknown]
  - Acute respiratory distress syndrome [Unknown]
  - Procalcitonin increased [Unknown]
  - Hypersensitivity [Unknown]

NARRATIVE: CASE EVENT DATE: 201802
